FAERS Safety Report 8605183-5 (Version None)
Quarter: 2012Q3

REPORT INFORMATION
  Report Type: 
  Country: None (occurrence: None)
  Receive Date: 20120820
  Receipt Date: 20120816
  Transmission Date: 20120928
  Serious: Yes (Life-Threatening, Other)
  Sender: FDA-Public Use
  Company Number: CH-ASTRAZENECA-2012SE58117

PATIENT
  Age: 28 Year
  Sex: Female

DRUGS (8)
  1. SEROQUEL [Suspect]
     Route: 048
     Dates: start: 20110101, end: 20111231
  2. EFFEXOR [Suspect]
     Route: 048
     Dates: start: 20080101, end: 20120109
  3. LAMICTAL [Suspect]
     Dates: end: 20100101
  4. OXAZEPAM [Suspect]
  5. CITALOPRAM HYDROBROMIDE [Suspect]
     Dates: start: 20070101
  6. TEGRETOL [Suspect]
     Route: 048
     Dates: start: 20120101
  7. FLURAZEPAM [Suspect]
     Route: 048
     Dates: start: 20110101, end: 20111231
  8. CYMBALTA [Suspect]
     Dates: start: 20070101

REACTIONS (2)
  - MATERNAL EXPOSURE DURING PREGNANCY [None]
  - SUICIDE ATTEMPT [None]
